FAERS Safety Report 18450508 (Version 2)
Quarter: 2021Q2

REPORT INFORMATION
  Report Type: Spontaneous
  Country: US (occurrence: US)
  Receive Date: 20201030
  Receipt Date: 20210510
  Transmission Date: 20210717
  Serious: No
  Sender: FDA-Public Use
  Company Number: US-PFIZER INC-2020419561

PATIENT
  Age: 51 Year
  Sex: Female

DRUGS (1)
  1. XELJANZ [Suspect]
     Active Substance: TOFACITINIB CITRATE
     Indication: RHEUMATOID ARTHRITIS
     Dosage: 5 MG, 2X/DAY (EVERY MORNING AND EVERY EVENING)
     Route: 048
     Dates: start: 20180101

REACTIONS (2)
  - Infection [Unknown]
  - Root canal infection [Unknown]

NARRATIVE: CASE EVENT DATE: 202009
